FAERS Safety Report 13527358 (Version 1)
Quarter: 2017Q2

REPORT INFORMATION
  Report Type: Spontaneous
  Country: SE (occurrence: SE)
  Receive Date: 20170509
  Receipt Date: 20170509
  Transmission Date: 20170830
  Serious: Yes (Other)
  Sender: FDA-Public Use
  Company Number: SE-RARE DISEASE THERAPEUTICS, INC.-2020455

PATIENT
  Sex: Female

DRUGS (1)
  1. PURIXAN [Suspect]
     Active Substance: MERCAPTOPURINE
     Indication: IRRITABLE BOWEL SYNDROME

REACTIONS (2)
  - Off label use [Unknown]
  - Drug intolerance [Unknown]
